FAERS Safety Report 10047909 (Version 1)
Quarter: 2014Q1

REPORT INFORMATION
  Report Type: Spontaneous
  Country: US (occurrence: US)
  Receive Date: 20140331
  Receipt Date: 20140331
  Transmission Date: 20141002
  Serious: Yes (Other)
  Sender: FDA-Public Use
  Company Number: US-TEVA-471891USA

PATIENT
  Age: 93 Year
  Sex: Female

DRUGS (1)
  1. NITROFURANTOIN [Suspect]

REACTIONS (4)
  - Abasia [Recovered/Resolved]
  - Dizziness [Recovered/Resolved]
  - Nausea [Recovered/Resolved]
  - Headache [Recovered/Resolved]
